FAERS Safety Report 9341785 (Version 1)
Quarter: 2013Q2

REPORT INFORMATION
  Report Type: Spontaneous
  Country: US (occurrence: None)
  Receive Date: 20130606
  Receipt Date: 20130606
  Transmission Date: 20140414
  Serious: Yes (Hospitalization)
  Sender: FDA-Public Use
  Company Number: 1734851

PATIENT
  Age: 61 Year
  Sex: Female

DRUGS (6)
  1. CEFEPIME HYDROCHLORIDE [Suspect]
     Indication: ARTHRITIS BACTERIAL
  2. METOPROLOL [Suspect]
     Indication: HYPERTENSION
     Route: 048
  3. LEVOFLOXACIN [Suspect]
     Indication: ARTHRITIS BACTERIAL
     Route: 048
  4. TACROLIMUS [Suspect]
     Indication: LIVER TRANSPLANT
     Route: 048
  5. COUMADIN [Suspect]
     Indication: BUDD-CHIARI SYNDROME
     Route: 048
  6. DOCUSATE SODIUM [Suspect]
     Indication: PRODUCT USED FOR UNKNOWN INDICATION
     Route: 048

REACTIONS (4)
  - Skin exfoliation [None]
  - Pruritus [None]
  - Erythema [None]
  - Urticaria [None]
